FAERS Safety Report 10181836 (Version 1)
Quarter: 2014Q2

REPORT INFORMATION
  Report Type: Spontaneous
  Country: US (occurrence: US)
  Receive Date: 20140519
  Receipt Date: 20140519
  Transmission Date: 20141212
  Serious: No
  Sender: FDA-Public Use
  Company Number: US-PFIZER INC-2014136386

PATIENT
  Age: 57 Year
  Sex: Female
  Weight: 47.17 kg

DRUGS (3)
  1. REVATIO [Suspect]
     Indication: CARDIAC FAILURE CONGESTIVE
     Dosage: 20 MG, 3X/DAY
     Dates: start: 20140227
  2. HUMALOG [Concomitant]
     Indication: DIABETES MELLITUS
     Dosage: UNK
  3. LANTUS [Concomitant]
     Indication: DIABETES MELLITUS
     Dosage: 25 MG, DAILY

REACTIONS (1)
  - Diarrhoea [Not Recovered/Not Resolved]
